FAERS Safety Report 10045258 (Version 2)
Quarter: 2014Q2

REPORT INFORMATION
  Report Type: Spontaneous
  Country: JP (occurrence: JP)
  Receive Date: 20140328
  Receipt Date: 20140404
  Transmission Date: 20141212
  Serious: Yes (Hospitalization)
  Sender: FDA-Public Use
  Company Number: JP-TAKEDA-2014TJP004299

PATIENT
  Age: 85 Year
  Sex: Male

DRUGS (5)
  1. ROZEREM TABLETS 8MG. [Suspect]
     Indication: INSOMNIA
     Dosage: 8 MG, QD
     Route: 048
     Dates: start: 20140203
  2. PARIET [Concomitant]
     Dosage: UNK
     Route: 048
  3. REMINYL [Concomitant]
     Dosage: UNK
     Route: 048
  4. PLAVIX [Concomitant]
     Dosage: UNK
     Route: 048
  5. BIOFERMIN                          /00275501/ [Concomitant]
     Dosage: UNK
     Route: 048

REACTIONS (1)
  - Blood pressure decreased [Recovered/Resolved]
